FAERS Safety Report 6429863-5 (Version None)
Quarter: 2009Q4

REPORT INFORMATION
  Report Type: 
  Country: None (occurrence: None)
  Receive Date: 20091106
  Receipt Date: 20091028
  Transmission Date: 20100525
  Serious: Yes (Death, Life-Threatening, Hospitalization)
  Sender: FDA-Public Use
  Company Number: ZA-JNJFOC-20091002382

PATIENT
  Sex: Female
  Weight: 48 kg

DRUGS (7)
  1. REVELLEX [Suspect]
     Route: 042
     Dates: start: 20070801, end: 20090825
  2. REVELLEX [Suspect]
     Indication: PYODERMA GANGRENOSUM
     Route: 042
     Dates: start: 20070801, end: 20090825
  3. REVELLEX [Suspect]
     Indication: CROHN'S DISEASE
     Route: 042
     Dates: start: 20070801, end: 20090825
  4. IMURAN [Suspect]
     Indication: CROHN'S DISEASE
     Route: 048
  5. SULPIRIDE [Concomitant]
     Indication: DEPRESSION
     Route: 048
  6. ANTI-ANXIOLITIC [Concomitant]
     Indication: ANXIETY
     Route: 048
  7. CONCOR [Concomitant]
     Route: 048

REACTIONS (5)
  - DEHYDRATION [None]
  - DIARRHOEA [None]
  - MALAISE [None]
  - RENAL FAILURE [None]
  - SEPSIS [None]
